FAERS Safety Report 10612005 (Version 2)
Quarter: 2015Q1

REPORT INFORMATION
  Report Type: Report from Study
  Country: NL (occurrence: NL)
  Receive Date: 20141126
  Receipt Date: 20150225
  Transmission Date: 20150720
  Serious: Yes (Death)
  Sender: FDA-Public Use
  Company Number: NL-ABBVIE-14P-114-1312907-00

PATIENT
  Age: 85 Year
  Sex: Male

DRUGS (1)
  1. LUCRIN (LEUPRORELINE) [Suspect]
     Active Substance: LEUPROLIDE ACETATE
     Indication: PROSTATE CANCER METASTATIC
     Route: 058
     Dates: start: 201010

REACTIONS (3)
  - Coronary artery insufficiency [Unknown]
  - Cardiac failure [Fatal]
  - Prostate cancer metastatic [Fatal]

NARRATIVE: CASE EVENT DATE: 201410
